FAERS Safety Report 6187150-7 (Version None)
Quarter: 2009Q2

REPORT INFORMATION
  Report Type: 
  Country: None (occurrence: None)
  Receive Date: 20090508
  Receipt Date: 20090429
  Transmission Date: 20091009
  Serious: Yes (Hospitalization)
  Sender: FDA-Public Use
  Company Number: GXKR2009US05241

PATIENT
  Age: 45 Year
  Sex: Female

DRUGS (2)
  1. CARBOPLATIN [Suspect]
     Indication: SMALL CELL LUNG CANCER STAGE UNSPECIFIED
     Dosage: 60MG/M2 (SECOND DOSE, 8 DAYS BEFORE ADMISSION)
  2. GEMCITABINE [Suspect]
     Indication: SMALL CELL LUNG CANCER STAGE UNSPECIFIED
     Dosage: 1250 MG/M2 (SECOND DOSE, 8 DAYS BEFORE ADMISSON)

REACTIONS (13)
  - CONFUSIONAL STATE [None]
  - ENDOTRACHEAL INTUBATION [None]
  - EYE MOVEMENT DISORDER [None]
  - HEADACHE [None]
  - LETHARGY [None]
  - MECHANICAL VENTILATION [None]
  - MENTAL IMPAIRMENT [None]
  - MYDRIASIS [None]
  - REVERSIBLE POSTERIOR LEUKOENCEPHALOPATHY SYNDROME [None]
  - STATUS EPILEPTICUS [None]
  - TREMOR [None]
  - UNRESPONSIVE TO STIMULI [None]
  - VISION BLURRED [None]
